FAERS Safety Report 12932349 (Version 1)
Quarter: 2016Q4

REPORT INFORMATION
  Report Type: Spontaneous
  Country: FI (occurrence: FI)
  Receive Date: 20161111
  Receipt Date: 20161111
  Transmission Date: 20170207
  Serious: Yes (Hospitalization, Other)
  Sender: FDA-Public Use
  Company Number: FI-BRISTOL-MYERS SQUIBB COMPANY-BMS-2016-095487

PATIENT
  Age: 79 Year
  Sex: Female

DRUGS (1)
  1. ELIQUIS [Suspect]
     Active Substance: APIXABAN
     Indication: CEREBROVASCULAR ACCIDENT PROPHYLAXIS
     Dosage: 5 MG, BID
     Route: 065

REACTIONS (4)
  - Aspiration pleural cavity [Recovered/Resolved]
  - Abdominal pain upper [Unknown]
  - Surgery [Unknown]
  - Haemorrhage [Recovered/Resolved]
